FAERS Safety Report 18040746 (Version 6)
Quarter: 2021Q2

REPORT INFORMATION
  Report Type: Report from Study
  Country: US (occurrence: US)
  Receive Date: 20200717
  Receipt Date: 20210615
  Transmission Date: 20210717
  Serious: Yes (Hospitalization, Other)
  Sender: FDA-Public Use
  Company Number: NVSC2020US200389

PATIENT
  Sex: Female

DRUGS (2)
  1. ENTRESTO [Suspect]
     Active Substance: SACUBITRIL\VALSARTAN
     Indication: CARDIAC FAILURE
     Dosage: 1 DF, BID
     Route: 048
  2. EFFEXOR [Suspect]
     Active Substance: VENLAFAXINE HYDROCHLORIDE
     Indication: PRODUCT USED FOR UNKNOWN INDICATION
     Dosage: UNK
     Route: 065

REACTIONS (18)
  - Dyspnoea [Unknown]
  - Vomiting [Unknown]
  - Ascites [Unknown]
  - Cough [Unknown]
  - Carbon dioxide increased [Unknown]
  - Claustrophobia [Unknown]
  - Abdominal discomfort [Unknown]
  - Nausea [Unknown]
  - Product dose omission issue [Unknown]
  - Fatigue [Unknown]
  - Dehydration [Unknown]
  - Weight increased [Unknown]
  - COVID-19 [Recovering/Resolving]
  - Anxiety [Unknown]
  - Tremor [Unknown]
  - Diarrhoea [Unknown]
  - Fluid retention [Unknown]
  - Illness [Unknown]
